FAERS Safety Report 17233101 (Version 1)
Quarter: 2020Q1

REPORT INFORMATION
  Report Type: Spontaneous
  Country: SE (occurrence: SE)
  Receive Date: 20200104
  Receipt Date: 20200104
  Transmission Date: 20200409
  Serious: Yes (Hospitalization)
  Sender: FDA-Public Use
  Company Number: SE-TEVA-2019-SE-1160944

PATIENT
  Sex: Female

DRUGS (4)
  1. MIRTAZAPINE. [Suspect]
     Active Substance: MIRTAZAPINE
     Route: 048
     Dates: start: 20190603, end: 20190603
  2. ATARAX [Suspect]
     Active Substance: HYDROXYZINE HYDROCHLORIDE
     Route: 048
     Dates: start: 20190603, end: 20190603
  3. PROPAVAN [Suspect]
     Active Substance: PROPIOMAZINE
     Dosage: 250 MG
     Route: 048
     Dates: start: 20190603, end: 20190603
  4. OXASCAND [Suspect]
     Active Substance: OXAZEPAM
     Dosage: 50 MG
     Route: 048
     Dates: start: 20190603, end: 20190603

REACTIONS (2)
  - Fatigue [Unknown]
  - Intentional overdose [Unknown]

NARRATIVE: CASE EVENT DATE: 20190603
